FAERS Safety Report 9371072 (Version 3)
Quarter: 2014Q1

REPORT INFORMATION
  Report Type: Report from Study
  Country: CA (occurrence: CA)
  Receive Date: 20130627
  Receipt Date: 20140325
  Transmission Date: 20141002
  Serious: Yes (Other)
  Sender: FDA-Public Use
  Company Number: CA-ROCHE-1218586

PATIENT
  Age: 59 Year
  Sex: Female
  Weight: 47.6 kg

DRUGS (13)
  1. RITUXAN [Suspect]
     Indication: RHEUMATOID ARTHRITIS
     Route: 042
     Dates: start: 20130423
  2. ACTEMRA [Suspect]
     Indication: RHEUMATOID ARTHRITIS
     Route: 042
     Dates: start: 20110708, end: 20120530
  3. ACTEMRA [Suspect]
     Route: 042
     Dates: start: 20110913
  4. ACTEMRA [Suspect]
     Route: 042
     Dates: start: 20120306
  5. DOXEPIN [Suspect]
     Indication: INSOMNIA
     Route: 065
  6. DIPHENHYDRAMINE HCL [Concomitant]
     Indication: PREMEDICATION
     Route: 048
     Dates: start: 20130423
  7. ACETAMINOPHEN [Concomitant]
     Indication: PREMEDICATION
     Route: 048
     Dates: start: 20130423
  8. METHYLPREDNISOLONE [Concomitant]
     Indication: PREMEDICATION
     Route: 042
     Dates: start: 20130423
  9. LEFLUNOMIDE [Concomitant]
  10. SULFASALAZINE [Concomitant]
  11. SUMATRIPTAN [Concomitant]
  12. FOLIC ACID [Concomitant]
  13. CALCIUM CITRATE [Concomitant]

REACTIONS (8)
  - Dyspnoea exertional [Recovered/Resolved]
  - Oropharyngeal pain [Recovered/Resolved]
  - Throat irritation [Recovered/Resolved]
  - Skin ulcer [Recovered/Resolved]
  - Herpes zoster [Recovered/Resolved]
  - Rash [Not Recovered/Not Resolved]
  - Drug effect decreased [Unknown]
  - Insomnia [Unknown]
